FAERS Safety Report 24043044 (Version 1)
Quarter: 2024Q3

REPORT INFORMATION
  Report Type: Spontaneous
  Country: CN (occurrence: CN)
  Receive Date: 20240702
  Receipt Date: 20240702
  Transmission Date: 20241016
  Serious: Yes (Other)
  Sender: NOVARTIS
  Company Number: CN-002147023-NVSC2024CN137174

PATIENT
  Age: 66 Year
  Sex: Female
  Weight: 54 kg

DRUGS (1)
  1. TRILEPTAL [Suspect]
     Active Substance: OXCARBAZEPINE
     Indication: Epilepsy
     Dosage: 0.3 G, BID
     Route: 048
     Dates: start: 20240210, end: 20240606

REACTIONS (4)
  - Inappropriate antidiuretic hormone secretion [Unknown]
  - Hyponatraemia [Recovering/Resolving]
  - Dizziness [Unknown]
  - Nystagmus [Unknown]

NARRATIVE: CASE EVENT DATE: 20240528
